FAERS Safety Report 20084269 (Version 1)
Quarter: 2021Q4

REPORT INFORMATION
  Report Type: Report from Study
  Country: CA (occurrence: CA)
  Receive Date: 20211118
  Receipt Date: 20211118
  Transmission Date: 20220303
  Serious: Yes (Other)
  Sender: FDA-Public Use
  Company Number: CA-SA-SAC20210602001053

PATIENT
  Age: 67 Year
  Sex: Female

DRUGS (3)
  1. SARILUMAB [Suspect]
     Active Substance: SARILUMAB
     Indication: Rheumatoid arthritis
     Dosage: 200 MG, QOW
     Route: 058
     Dates: start: 20200411
  2. METHOTREXATE [Concomitant]
     Active Substance: METHOTREXATE
     Dosage: UNK
  3. COVID-19 VACCINE [Concomitant]
     Indication: Immunisation
     Dosage: UNK
     Dates: start: 20210502

REACTIONS (7)
  - Rheumatoid arthritis [Recovered/Resolved]
  - Rheumatoid arthritis [Not Recovered/Not Resolved]
  - Pain in extremity [Recovered/Resolved]
  - Peripheral swelling [Recovered/Resolved]
  - Pain in extremity [Not Recovered/Not Resolved]
  - Peripheral swelling [Not Recovered/Not Resolved]
  - Intentional dose omission [Unknown]

NARRATIVE: CASE EVENT DATE: 20210101
